FAERS Safety Report 8448036-8 (Version None)
Quarter: 2012Q2

REPORT INFORMATION
  Report Type: 
  Country: None (occurrence: None)
  Receive Date: 20120619
  Receipt Date: 20120611
  Transmission Date: 20120825
  Serious: Yes (Hospitalization)
  Sender: FDA-Public Use
  Company Number: US-BAYER-2012-059033

PATIENT
  Age: 26 Year
  Sex: Female
  Weight: 61.678 kg

DRUGS (14)
  1. DROSPIRENONE AND ETHINYL ESTRADIOL [Suspect]
  2. FISH OIL [Concomitant]
  3. ZOFRAN [Concomitant]
  4. IBUPROFEN [Concomitant]
     Dosage: 800 MG, UNK
     Dates: start: 20110506, end: 20110709
  5. METHYLPREDNISOLONE [Concomitant]
     Indication: COSTOCHONDRITIS
  6. TORADOL [Concomitant]
  7. AZITHROMYCIN [Concomitant]
     Indication: PNEUMONIA
  8. PERCOCET [Concomitant]
  9. ROCEPHIN [Concomitant]
     Indication: PNEUMONIA
  10. FLUOXETINE HYDROCHLORIDE [Concomitant]
     Dosage: 20 MG, UNK
     Dates: start: 20101115, end: 20110215
  11. MORPHINE [Concomitant]
  12. COLACE [Concomitant]
  13. ACETAMINOPHEN [Concomitant]
  14. BEYAZ [Suspect]

REACTIONS (3)
  - PULMONARY EMBOLISM [None]
  - DEEP VEIN THROMBOSIS [None]
  - PULMONARY INFARCTION [None]
